FAERS Safety Report 5844628-0 (Version None)
Quarter: 2008Q3

REPORT INFORMATION
  Report Type: 
  Country: None (occurrence: None)
  Receive Date: 20080814
  Receipt Date: 20080804
  Transmission Date: 20090109
  Serious: Yes (Other)
  Sender: FDA-Public Use
  Company Number: US-JNJFOC-20080602546

PATIENT
  Sex: Female
  Weight: 68.95 kg

DRUGS (11)
  1. REMICADE [Suspect]
     Indication: PSORIASIS
     Route: 042
  2. METHOTREXATE [Concomitant]
     Indication: PSORIASIS
  3. CELLCEPT [Concomitant]
     Indication: PSORIASIS
  4. LEXAPRO [Concomitant]
     Indication: ANXIETY
  5. ACEPHEX [Concomitant]
     Indication: GASTROOESOPHAGEAL REFLUX DISEASE
  6. TRAZODONE HCL [Concomitant]
     Indication: ANXIETY
  7. EPOGEN [Concomitant]
  8. FOLIC ACID [Concomitant]
  9. PRED FORTE [Concomitant]
     Route: 047
  10. ALPHAGAN [Concomitant]
  11. HOMATROPAINE [Concomitant]

REACTIONS (2)
  - NIGHT SWEATS [None]
  - UVEITIS [None]
